FAERS Safety Report 5934040-8 (Version None)
Quarter: 2008Q4

REPORT INFORMATION
  Report Type: 
  Country: None (occurrence: None)
  Receive Date: 20081024
  Receipt Date: 20081013
  Transmission Date: 20090506
  Serious: Yes (Life-Threatening, Other)
  Sender: FDA-Public Use
  Company Number: 035685

PATIENT
  Age: 36 Year
  Sex: Female

DRUGS (1)
  1. CITALOPRAM HYDROBROMIDE [Suspect]
     Dosage: 50 X 20 MG AT ONCE,

REACTIONS (11)
  - CARDIAC ARREST [None]
  - CARDIOTOXICITY [None]
  - ELECTROCARDIOGRAM QT PROLONGED [None]
  - HYPOAESTHESIA [None]
  - HYPOTENSION [None]
  - LOSS OF CONSCIOUSNESS [None]
  - OVERDOSE [None]
  - PALPITATIONS [None]
  - TACHYCARDIA PAROXYSMAL [None]
  - TORSADE DE POINTES [None]
  - TREMOR [None]
